FAERS Safety Report 4798984-5 (Version None)
Quarter: 2005Q4

REPORT INFORMATION
  Report Type: 
  Country: None (occurrence: None)
  Receive Date: 20051014
  Receipt Date: 20051005
  Transmission Date: 20060501
  Serious: Yes (Congenital Anomaly)
  Sender: FDA-Public Use
  Company Number: JP-ABBOTT-05P-087-0313416-00

PATIENT
  Sex: Male
  Weight: 3.368 kg

DRUGS (8)
  1. BIPERIDEN HYDROCHLORIDE TAB [Suspect]
     Indication: DRUG EXPOSURE DURING PREGNANCY
  2. ESTAZOLAM [Suspect]
     Indication: DRUG EXPOSURE DURING PREGNANCY
  3. HALOPERIDOL [Suspect]
     Indication: DRUG EXPOSURE DURING PREGNANCY
  4. FLUPHENAZINE ENANTHATE [Suspect]
     Indication: DRUG EXPOSURE DURING PREGNANCY
  5. RISPERIDONE [Suspect]
     Indication: DRUG EXPOSURE DURING PREGNANCY
  6. CHLORPROMAZINE HIBENZATE [Suspect]
     Indication: DRUG EXPOSURE DURING PREGNANCY
  7. BROTIZOLAM [Suspect]
     Indication: DRUG EXPOSURE DURING PREGNANCY
  8. NITRAZEPAM [Suspect]
     Indication: DRUG EXPOSURE DURING PREGNANCY

REACTIONS (2)
  - PATENT DUCTUS ARTERIOSUS [None]
  - PNEUMOTHORAX [None]
